FAERS Safety Report 20534784 (Version 1)
Quarter: 2022Q1

REPORT INFORMATION
  Report Type: Report from Study
  Country: US (occurrence: US)
  Receive Date: 20220302
  Receipt Date: 20220302
  Transmission Date: 20220424
  Serious: Yes (Other)
  Sender: FDA-Public Use
  Company Number: US-TEVA-798635USA

PATIENT
  Age: 37 Year
  Sex: Female

DRUGS (1)
  1. CLARAVIS [Suspect]
     Active Substance: ISOTRETINOIN
     Indication: Acne
     Route: 065
     Dates: start: 2017

REACTIONS (3)
  - Skin abrasion [Not Recovered/Not Resolved]
  - Emotional disorder [Unknown]
  - Stress [Unknown]

NARRATIVE: CASE EVENT DATE: 20170101
